FAERS Safety Report 10685172 (Version 1)
Quarter: 2014Q4

REPORT INFORMATION
  Report Type: Spontaneous
  Country: US (occurrence: None)
  Receive Date: 20141230
  Receipt Date: 20141230
  Transmission Date: 20150529
  Serious: No
  Sender: FDA-Public Use
  Company Number: None

PATIENT
  Age: 84 Year
  Sex: Female
  Weight: 63.5 kg

DRUGS (1)
  1. LOSARTAN 25 MG WATSON PHARMACEUTICALS [Suspect]
     Active Substance: LOSARTAN
     Indication: BLOOD PRESSURE
     Dosage: 1 PILL
     Route: 048

REACTIONS (4)
  - Constipation [None]
  - Alopecia [None]
  - Vision blurred [None]
  - Dizziness [None]
